FAERS Safety Report 8123070-6 (Version None)
Quarter: 2012Q1

REPORT INFORMATION
  Report Type: 
  Country: None (occurrence: None)
  Receive Date: 20120208
  Receipt Date: 20120203
  Transmission Date: 20120608
  Serious: No
  Sender: FDA-Public Use
  Company Number: US-PFIZER INC-2012030906

PATIENT
  Age: 27 Year
  Sex: Male
  Weight: 72.562 kg

DRUGS (1)
  1. ZYVOX [Suspect]
     Indication: INFECTION
     Dosage: 600 MG, 2X/DAY
     Dates: start: 20111001

REACTIONS (1)
  - TOOTH DISCOLOURATION [None]
